FAERS Safety Report 9507641 (Version 1)
Quarter: 2013Q3

REPORT INFORMATION
  Report Type: Spontaneous
  Country: US (occurrence: None)
  Receive Date: 20130906
  Receipt Date: 20130906
  Transmission Date: 20140515
  Serious: No
  Sender: FDA-Public Use
  Company Number: None

PATIENT
  Age: 67 Year
  Sex: Female
  Weight: 79.83 kg

DRUGS (5)
  1. OMEPRAZOLE [Suspect]
     Indication: GASTROOESOPHAGEAL REFLUX DISEASE
     Route: 048
     Dates: start: 20130716, end: 20130903
  2. OMEPRAZOLE [Concomitant]
  3. LISINOPRIL [Concomitant]
  4. GENERIC LIPITOR [Concomitant]
  5. VITAMIN B12 [Concomitant]

REACTIONS (5)
  - Product substitution issue [None]
  - Gastrooesophageal reflux disease [None]
  - Erosive oesophagitis [None]
  - Drug ineffective [None]
  - Product quality issue [None]
